FAERS Safety Report 6176753-1 (Version None)
Quarter: 2009Q2

REPORT INFORMATION
  Report Type: 
  Country: None (occurrence: None)
  Receive Date: 20090501
  Receipt Date: 20080606
  Transmission Date: 20091009
  Serious: Yes (Hospitalization, Other)
  Sender: FDA-Public Use
  Company Number: FR-ALEXION-A200800036

PATIENT

DRUGS (24)
  1. SOLIRIS [Suspect]
     Indication: PAROXYSMAL NOCTURNAL HAEMOGLOBINURIA
     Dosage: 600 MG, SINGLE
     Route: 042
     Dates: start: 20070711, end: 20070711
  2. SOLIRIS [Suspect]
     Dosage: 600 MG, SINGLE
     Route: 042
     Dates: start: 20070801, end: 20070801
  3. SOLIRIS [Suspect]
     Dosage: 900 MG, SINGLE
     Route: 042
     Dates: start: 20070808, end: 20070808
  4. SOLIRIS [Suspect]
     Dosage: 900 MG, SINGLE
     Route: 042
     Dates: start: 20070822, end: 20070822
  5. SOLIRIS [Suspect]
     Dosage: 900 MG, SINGLE
     Route: 042
     Dates: start: 20070905, end: 20070905
  6. SOLIRIS [Suspect]
     Dosage: 900 MG, SINGLE
     Route: 042
     Dates: start: 20070919, end: 20070919
  7. SOLIRIS [Suspect]
     Dosage: 900 MG, SINGLE
     Route: 042
     Dates: start: 20071003, end: 20071003
  8. SOLIRIS [Suspect]
     Dosage: 900 MG, SINGLE
     Route: 042
     Dates: start: 20071017, end: 20071017
  9. SOLIRIS [Suspect]
     Dosage: 900 MG, SINGLE
     Route: 042
     Dates: start: 20071106, end: 20071106
  10. SOLIRIS [Suspect]
     Dosage: 900 MG, SINGLE
     Route: 042
     Dates: start: 20071120, end: 20071120
  11. SOLIRIS [Suspect]
     Dosage: 900 MG, SINGLE
     Route: 042
     Dates: start: 20071204, end: 20071204
  12. SOLIRIS [Suspect]
     Dosage: 900 MG, SINGLE
     Route: 042
     Dates: start: 20071218, end: 20071218
  13. SOLIRIS [Suspect]
     Dosage: 900 MG, SINGLE
     Route: 042
     Dates: start: 20080102, end: 20080102
  14. SOLIRIS [Suspect]
     Dosage: 900 MG, SINGLE
     Route: 042
     Dates: start: 20080124, end: 20080124
  15. SOLIRIS [Suspect]
     Dosage: 900 MG, SINGLE
     Route: 042
     Dates: start: 20080212, end: 20080212
  16. SOLIRIS [Suspect]
     Dosage: 900 MG, SINGLE
     Route: 042
     Dates: start: 20080220, end: 20080220
  17. SOLIRIS [Suspect]
     Dosage: 900 MG, SINGLE
     Route: 042
     Dates: start: 20080501, end: 20080501
  18. SOLIRIS [Suspect]
     Dosage: 600 MG, SINGLE
     Route: 042
     Dates: start: 20080520, end: 20080520
  19. SOLIRIS [Suspect]
     Dosage: 600 MG, SINGLE
     Route: 042
     Dates: start: 20080501, end: 20080501
  20. SOLIRIS [Suspect]
     Dosage: 600 MG, SINGLE
     Route: 042
     Dates: start: 20080603, end: 20080603
  21. ANTIVITAMIN K [Concomitant]
  22. CORTICOSTEROID NOS [Concomitant]
     Dosage: 7 MG, QD
  23. ORACILLINE [Concomitant]
     Indication: INFECTION PROPHYLAXIS
     Route: 048
  24. ORGARAN [Concomitant]
     Indication: THROMBOSIS PROPHYLAXIS

REACTIONS (19)
  - ABDOMINAL DISTENSION [None]
  - ASCITES [None]
  - BILIRUBIN CONJUGATED INCREASED [None]
  - BLOOD LACTATE DEHYDROGENASE INCREASED [None]
  - HAEMOGLOBIN DECREASED [None]
  - HAEMOLYSIS [None]
  - HAPTOGLOBIN ABNORMAL [None]
  - HEPATIC ENCEPHALOPATHY [None]
  - HEPATOCELLULAR INJURY [None]
  - HEPATOMEGALY [None]
  - HYPERKALAEMIA [None]
  - HYPONATRAEMIA [None]
  - LEUKOCYTOSIS [None]
  - NIGHT SWEATS [None]
  - PYREXIA [None]
  - RASH VESICULAR [None]
  - RENAL FAILURE [None]
  - THROMBOSIS IN DEVICE [None]
  - TUBERCULOSIS [None]
